FAERS Safety Report 8231989-0 (Version None)
Quarter: 2012Q1

REPORT INFORMATION
  Report Type: 
  Country: None (occurrence: None)
  Receive Date: 20120323
  Receipt Date: 20120302
  Transmission Date: 20120608
  Serious: Yes (Hospitalization, Other)
  Sender: FDA-Public Use
  Company Number: BR-ROCHE-1048152

PATIENT
  Sex: Female

DRUGS (7)
  1. XOLAIR [Suspect]
     Indication: RHINITIS
  2. FLUTICASONE FUROATE [Concomitant]
  3. RELESTAT [Concomitant]
  4. RINOSORO [Concomitant]
  5. FLUTICASONE PROPIONATE/SALMETEROL [Concomitant]
     Dosage: 50/500
  6. XOLAIR [Suspect]
     Indication: ASTHMA
     Dates: start: 20110601
  7. XOLAIR [Suspect]
     Indication: CHRONIC SINUSITIS

REACTIONS (8)
  - INFLUENZA [None]
  - CHEST PAIN [None]
  - BACK PAIN [None]
  - FATIGUE [None]
  - ASTHMA [None]
  - MALAISE [None]
  - HEADACHE [None]
  - SINUSITIS [None]
